FAERS Safety Report 23545924 (Version 1)
Quarter: 2024Q1

REPORT INFORMATION
  Report Type: Spontaneous
  Country: GB (occurrence: GB)
  Receive Date: 20240220
  Receipt Date: 20240220
  Transmission Date: 20240410
  Serious: Yes (Disabling, Other)
  Sender: FDA-Public Use
  Company Number: GB-ABBVIE-5646689

PATIENT

DRUGS (1)
  1. DIVALPROEX SODIUM [Suspect]
     Active Substance: DIVALPROEX SODIUM
     Indication: Maternal exposure timing unspecified
     Route: 064

REACTIONS (12)
  - Disability [Unknown]
  - Mental disorder [Unknown]
  - Developmental delay [Unknown]
  - Brain injury [Unknown]
  - Memory impairment [Unknown]
  - Deformity [Unknown]
  - Walking disability [Unknown]
  - Neurodevelopmental disorder [Unknown]
  - Language disorder [Unknown]
  - Speech disorder [Unknown]
  - Foetal exposure during pregnancy [Unknown]
  - Autism spectrum disorder [Unknown]
